FAERS Safety Report 9666593 (Version 1)
Quarter: 2013Q4

REPORT INFORMATION
  Report Type: Report from Study
  Country: US (occurrence: US)
  Receive Date: 20131104
  Receipt Date: 20131104
  Transmission Date: 20140711
  Serious: Yes (Hospitalization)
  Sender: FDA-Public Use
  Company Number: US-SHIRE-ALL1-2013-07499

PATIENT
  Age: 28 Year
  Sex: Male

DRUGS (6)
  1. IDURSULFASE [Suspect]
     Indication: MUCOPOLYSACCHARIDOSIS II
     Dosage: UNK UNK, UNKNOWN
     Route: 041
     Dates: start: 20100204
  2. LISINOPRIL [Concomitant]
     Indication: CARDIOVASCULAR DISORDER
     Dosage: 40 MG, 1X/DAY:QD
     Route: 048
     Dates: start: 2010, end: 2011
  3. FRUSEMIDE                          /00032601/ [Concomitant]
     Indication: CARDIOVASCULAR DISORDER
     Dosage: 120 MG, 1X/DAY:QD (AM)
     Route: 065
     Dates: start: 20101021, end: 20101115
  4. FRUSEMIDE                          /00032601/ [Concomitant]
     Dosage: 80 MG, 1X/DAY:QD (PM)
     Route: 065
     Dates: start: 20101021, end: 20101115
  5. OXYCONTIN [Concomitant]
     Indication: PAIN
     Dosage: 15 MG, 2X/DAY:BID
     Route: 048
     Dates: start: 20101012, end: 20101115
  6. POTASSIUM CHLORIDE [Concomitant]
     Indication: BLOOD POTASSIUM ABNORMAL
     Dosage: 20 MEQ, 1X/DAY:QD
     Route: 048
     Dates: start: 20100603, end: 2011

REACTIONS (1)
  - Fluid overload [Unknown]
